FAERS Safety Report 17001275 (Version 1)
Quarter: 2019Q4

REPORT INFORMATION
  Report Type: Spontaneous
  Country: US (occurrence: US)
  Receive Date: 20191106
  Receipt Date: 20191106
  Transmission Date: 20200122
  Serious: No
  Sender: FDA-Public Use
  Company Number: US-PURDUE-USA-2019-0146404

PATIENT
  Age: 49 Year
  Sex: Male

DRUGS (6)
  1. HYDROCODONE BITARTRATE (SIMILAR TO NDA 206627) [Suspect]
     Active Substance: HYDROCODONE BITARTRATE
     Dosage: UNK
     Route: 048
     Dates: start: 2017
  2. IBUPROFEN. [Concomitant]
     Active Substance: IBUPROFEN
     Indication: PAIN
     Route: 065
  3. MORPHINE SULFATE (SIMILAR TO NDA 19-516) [Suspect]
     Active Substance: MORPHINE SULFATE
     Dosage: 90 MG, UNK
     Route: 048
     Dates: start: 2017
  4. HYDROCODONE BITARTRATE (SIMILAR TO NDA 206627) [Suspect]
     Active Substance: HYDROCODONE BITARTRATE
     Indication: PAIN
     Dosage: UNK
     Route: 048
  5. MORPHINE SULFATE (SIMILAR TO NDA 19-516) [Suspect]
     Active Substance: MORPHINE SULFATE
     Indication: PAIN
     Dosage: 180 MG, UNK
     Route: 048
     Dates: start: 2006
  6. ACETAMINOPHEN. [Concomitant]
     Active Substance: ACETAMINOPHEN
     Indication: PAIN
     Route: 065

REACTIONS (1)
  - Social avoidant behaviour [Unknown]

NARRATIVE: CASE EVENT DATE: 2017
